FAERS Safety Report 8278480-3 (Version None)
Quarter: 2012Q2

REPORT INFORMATION
  Report Type: 
  Country: None (occurrence: None)
  Receive Date: 20120412
  Receipt Date: 20111109
  Transmission Date: 20120825
  Serious: No
  Sender: FDA-Public Use
  Company Number: US-ASTRAZENECA-2011SE68556

PATIENT
  Age: 84 Year
  Sex: Female
  Weight: 65.8 kg

DRUGS (3)
  1. AMBIEN [Concomitant]
     Indication: SLEEP DISORDER
  2. NEXIUM [Suspect]
     Indication: DYSPEPSIA
     Route: 048
     Dates: start: 20111109
  3. NEXIUM [Suspect]
     Indication: NAUSEA
     Route: 048
     Dates: start: 20111109

REACTIONS (2)
  - FATIGUE [None]
  - OFF LABEL USE [None]
